FAERS Safety Report 7275704-6 (Version None)
Quarter: 2011Q1

REPORT INFORMATION
  Report Type: 
  Country: None (occurrence: None)
  Receive Date: 20110204
  Receipt Date: 20110124
  Transmission Date: 20110831
  Serious: Yes (Hospitalization)
  Sender: FDA-Public Use
  Company Number: FR-PFIZER INC-2011025671

PATIENT
  Age: 71 Year
  Sex: Female

DRUGS (2)
  1. ATARAX [Suspect]
     Indication: ANXIETY
     Dosage: 25 MG OR 12.5 MG DAILY FOR SEVERAL YEARS
     Route: 048
  2. ATARAX [Suspect]
     Indication: HYPERSENSITIVITY

REACTIONS (1)
  - AORTIC DILATATION [None]
